FAERS Safety Report 14496773 (Version 2)
Quarter: 2018Q1

REPORT INFORMATION
  Report Type: Spontaneous
  Country: US (occurrence: US)
  Receive Date: 20180207
  Receipt Date: 20180321
  Transmission Date: 20180509
  Serious: No
  Sender: FDA-Public Use
  Company Number: US-PFIZER INC-2018044912

PATIENT
  Age: 10 Year
  Sex: Male

DRUGS (1)
  1. METHYLPHENIDATE HYDROCHLORIDE. [Suspect]
     Active Substance: METHYLPHENIDATE HYDROCHLORIDE
     Dosage: 20 MG, UNK
     Dates: start: 20180119

REACTIONS (5)
  - Retching [Unknown]
  - Drug ineffective [Unknown]
  - Decreased appetite [Unknown]
  - Aggression [Unknown]
  - Dysphagia [Unknown]

NARRATIVE: CASE EVENT DATE: 201801
